FAERS Safety Report 4376573-4 (Version None)
Quarter: 2004Q2

REPORT INFORMATION
  Report Type: 
  Country: None (occurrence: None)
  Receive Date: 20040614
  Receipt Date: 20040604
  Transmission Date: 20050107
  Serious: Yes (Hospitalization, Other)
  Sender: FDA-Public Use
  Company Number: CZ-JNJFOC-20040601735

PATIENT
  Sex: Female

DRUGS (5)
  1. REMICADE [Suspect]
     Indication: RHEUMATOID ARTHRITIS
     Route: 042
  2. PREDNISOLONE [Concomitant]
     Indication: RHEUMATOID ARTHRITIS
     Route: 049
     Dates: start: 19911201
  3. METHOTREXATUM [Concomitant]
     Indication: RHEUMATOID ARTHRITIS
     Route: 049
     Dates: start: 19911201
  4. FELODIPIDUM [Concomitant]
     Route: 049
     Dates: start: 20031101
  5. CELECOXIBUM [Concomitant]
     Indication: RHEUMATOID ARTHRITIS
     Route: 049
     Dates: start: 20030101

REACTIONS (3)
  - HIP ARTHROPLASTY [None]
  - POST PROCEDURAL COMPLICATION [None]
  - SCIATICA [None]
